FAERS Safety Report 8262111-2 (Version None)
Quarter: 2012Q2

REPORT INFORMATION
  Report Type: 
  Country: None (occurrence: None)
  Receive Date: 20120405
  Receipt Date: 20120402
  Transmission Date: 20120825
  Serious: Yes (Death)
  Sender: FDA-Public Use
  Company Number: PHHY2012CA009085

PATIENT
  Sex: Male

DRUGS (1)
  1. AFINITOR [Suspect]
     Indication: CARCINOID TUMOUR
     Dosage: 10 MG EVERY DAY
     Route: 048
     Dates: start: 20111201

REACTIONS (3)
  - DEATH [None]
  - OEDEMA PERIPHERAL [None]
  - FLUID RETENTION [None]
